FAERS Safety Report 4726853-5 (Version None)
Quarter: 2005Q3

REPORT INFORMATION
  Report Type: 
  Country: None (occurrence: None)
  Receive Date: 20050726
  Receipt Date: 20050714
  Transmission Date: 20060218
  Serious: Yes (Hospitalization)
  Sender: FDA-Public Use
  Company Number: HQWYE220314JUL05

PATIENT
  Age: 42 Year
  Sex: Male

DRUGS (3)
  1. RAPAMUNE [Suspect]
     Indication: PROPHYLAXIS AGAINST TRANSPLANT REJECTION
     Dosage: 6 MG 1X PER 1 DAY; ORAL
     Route: 048
     Dates: start: 20030612
  2. RAPAMUNE [Suspect]
     Dosage: 3 MG 1X PER 1 DAY; ORAL
     Route: 048
  3. PROGRAF [Suspect]
     Indication: PROPHYLAXIS AGAINST TRANSPLANT REJECTION
     Dosage: 7 MG 1X PER 1 DAY; ORAL, 6 MG 1X PER 1 DAY; ORAL
     Route: 048
     Dates: start: 20030612

REACTIONS (3)
  - DIABETIC FOOT [None]
  - INFECTED SKIN ULCER [None]
  - PYREXIA [None]
